FAERS Safety Report 7999291-X (Version None)
Quarter: 2011Q4

REPORT INFORMATION
  Report Type: 
  Country: None (occurrence: None)
  Receive Date: 20111221
  Receipt Date: 20111215
  Transmission Date: 20120403
  Serious: Yes (Hospitalization, Other)
  Sender: FDA-Public Use
  Company Number: PHHY2011GB109265

PATIENT
  Age: 72 Year
  Sex: Female
  Weight: 55 kg

DRUGS (6)
  1. ALENDRONATE SODIUM [Suspect]
     Indication: PROPHYLAXIS
     Dosage: 70 MG, UNK
     Route: 048
     Dates: start: 20081201
  2. ARTHROTEC [Concomitant]
  3. CANDESARTAN CILEXETIL [Concomitant]
  4. AMITRIPTYLINE HCL [Concomitant]
  5. LEVOTHYROXINE SODIUM [Concomitant]
  6. BENDROFLUAZIDE [Concomitant]

REACTIONS (2)
  - FALL [None]
  - FEMUR FRACTURE [None]
